FAERS Safety Report 5250793-9 (Version None)
Quarter: 2007Q1

REPORT INFORMATION
  Report Type: 
  Country: None (occurrence: None)
  Receive Date: 20070228
  Receipt Date: 20060824
  Transmission Date: 20070707
  Serious: No
  Sender: FDA-Public Use
  Company Number: SSN 8936

PATIENT
  Age: 12 Year
  Sex: Male
  Weight: 38.6 kg

DRUGS (2)
  1. LAMICTAL [Suspect]
     Indication: BIPOLAR DISORDER
     Dosage: 25MG PER DAY
     Route: 048
     Dates: start: 20060404
  2. NO CONCURRENT MEDICATION [Concomitant]

REACTIONS (2)
  - LYMPHADENOPATHY [None]
  - PRURITUS [None]
